FAERS Safety Report 5478065-8 (Version None)
Quarter: 2007Q4

REPORT INFORMATION
  Report Type: 
  Country: None (occurrence: None)
  Receive Date: 20071005
  Receipt Date: 20070928
  Transmission Date: 20080405
  Serious: Yes (Other)
  Sender: FDA-Public Use
  Company Number: US-BAYER-200712737BWH

PATIENT
  Age: 81 Year
  Sex: Male

DRUGS (13)
  1. NEXAVAR [Suspect]
     Indication: RENAL CELL CARCINOMA STAGE UNSPECIFIED
     Dosage: TOTAL DAILY DOSE: 800 MG  UNIT DOSE: 200 MG
     Route: 048
     Dates: start: 20070801
  2. NEXAVAR [Suspect]
     Dosage: TOTAL DAILY DOSE: 800 MG  UNIT DOSE: 200 MG
     Route: 048
     Dates: start: 20060201, end: 20060101
  3. NEXAVAR [Suspect]
     Dosage: TOTAL DAILY DOSE: 400 MG  UNIT DOSE: 200 MG
     Route: 048
     Dates: start: 20060101, end: 20060101
  4. TRICOR [Concomitant]
  5. TRIAMTERENE AND HYDROCHLOROTHIAZIDE [Concomitant]
  6. ALTACE [Concomitant]
  7. OMEPRAZOLE [Concomitant]
  8. PLAVIX [Concomitant]
  9. SIMVASTATIN [Concomitant]
  10. NIFEDIPINE [Concomitant]
  11. POTCHLOR SR [Concomitant]
  12. CENTRUM [Concomitant]
  13. CHOLINOID [Concomitant]

REACTIONS (4)
  - BASAL CELL CARCINOMA [None]
  - DIARRHOEA [None]
  - RASH PAPULAR [None]
  - RASH PRURITIC [None]
